FAERS Safety Report 7415108-6 (Version None)
Quarter: 2011Q2

REPORT INFORMATION
  Report Type: 
  Country: None (occurrence: None)
  Receive Date: 20110414
  Receipt Date: 20110401
  Transmission Date: 20111010
  Serious: Yes (Other)
  Sender: FDA-Public Use
  Company Number: PHHY2011BR27268

PATIENT
  Age: 67 Year
  Sex: Male
  Weight: 150 kg

DRUGS (1)
  1. DIOVAN HCT [Suspect]

REACTIONS (5)
  - URINE ABNORMALITY [None]
  - VISION BLURRED [None]
  - CEREBRAL ISCHAEMIA [None]
  - DIZZINESS [None]
  - MOVEMENT DISORDER [None]
